FAERS Safety Report 5519225-7 (Version None)
Quarter: 2007Q4

REPORT INFORMATION
  Report Type: 
  Country: None (occurrence: None)
  Receive Date: 20071114
  Receipt Date: 20071114
  Transmission Date: 20080405
  Serious: Yes (Hospitalization)
  Sender: FDA-Public Use
  Company Number: None

PATIENT
  Sex: Male
  Weight: 65.5 kg

DRUGS (3)
  1. METHOTREXATE [Suspect]
     Dosage: 910 MG
  2. PEG-L-ASPARAGINASE (K-H) [Suspect]
     Dosage: 8300 IU
  3. VINCRISTINE SULFATE [Suspect]
     Dosage: 8 MG

REACTIONS (16)
  - CARDIO-RESPIRATORY ARREST [None]
  - CATHETER SITE HAEMORRHAGE [None]
  - CHOLESTASIS [None]
  - DIARRHOEA [None]
  - GENERAL PHYSICAL HEALTH DETERIORATION [None]
  - HAEMODIALYSIS [None]
  - HAEMODYNAMIC INSTABILITY [None]
  - HAEMORRHAGE [None]
  - HEPATIC CIRRHOSIS [None]
  - HEPATIC FAILURE [None]
  - HEPATIC STEATOSIS [None]
  - HEPATORENAL SYNDROME [None]
  - PANCYTOPENIA [None]
  - PORTAL HYPERTENSION [None]
  - PULMONARY OEDEMA [None]
  - RENAL TUBULAR NECROSIS [None]
